FAERS Safety Report 17449077 (Version 2)
Quarter: 2020Q1

REPORT INFORMATION
  Report Type: Spontaneous
  Country: AT (occurrence: AT)
  Receive Date: 20200224
  Receipt Date: 20200303
  Transmission Date: 20200409
  Serious: Yes (Other)
  Sender: FDA-Public Use
  Company Number: AT-AMGEN-AUTSP2020030542

PATIENT
  Age: 60 Year
  Sex: Male

DRUGS (2)
  1. ARAVA [Suspect]
     Active Substance: LEFLUNOMIDE
     Indication: ENTEROPATHIC SPONDYLITIS
     Dosage: 10 MILLIGRAM, QD
     Route: 065
     Dates: start: 201401
  2. ENBREL [Suspect]
     Active Substance: ETANERCEPT
     Indication: ENTEROPATHIC SPONDYLITIS
     Dosage: 50 MILLIGRAM, QWK
     Route: 058
     Dates: start: 201405

REACTIONS (3)
  - Product use in unapproved indication [Unknown]
  - Colitis ulcerative [Unknown]
  - Off label use [Unknown]

NARRATIVE: CASE EVENT DATE: 201405
